FAERS Safety Report 5086570-1 (Version None)
Quarter: 2006Q3

REPORT INFORMATION
  Report Type: 
  Country: None (occurrence: None)
  Receive Date: 20060823
  Receipt Date: 20060817
  Transmission Date: 20061208
  Serious: Yes (Hospitalization)
  Sender: FDA-Public Use
  Company Number: US-GLAXOSMITHKLINE-A0617550A

PATIENT
  Age: 34 Year
  Sex: Female
  Weight: 51.9 kg

DRUGS (3)
  1. FLOLAN [Suspect]
     Dosage: 26MGK PER DAY
     Route: 042
     Dates: start: 20011128
  2. SILDENAFIL CITRATE [Suspect]
     Dosage: 20MG THREE TIMES PER DAY
     Route: 048
     Dates: start: 20050222
  3. METAMIZOLE [Concomitant]

REACTIONS (9)
  - AGITATION [None]
  - ANXIETY [None]
  - CONSTIPATION [None]
  - DECREASED APPETITE [None]
  - DIZZINESS [None]
  - HEADACHE [None]
  - HYPERTHYROIDISM [None]
  - INSOMNIA [None]
  - MUSCLE TWITCHING [None]
